FAERS Safety Report 13550002 (Version 1)
Quarter: 2017Q2

REPORT INFORMATION
  Report Type: Spontaneous
  Country: FR (occurrence: FR)
  Receive Date: 20170516
  Receipt Date: 20170516
  Transmission Date: 20170830
  Serious: Yes (Death, Hospitalization, Other)
  Sender: FDA-Public Use
  Company Number: FR-GLAXOSMITHKLINE-FR2017GSK068746

PATIENT
  Age: 34 Year
  Sex: Male

DRUGS (4)
  1. CLOBAZAM [Suspect]
     Active Substance: CLOBAZAM
     Indication: PRODUCT USED FOR UNKNOWN INDICATION
     Dosage: UNK
  2. METOPROLOL. [Suspect]
     Active Substance: METOPROLOL
     Indication: PRODUCT USED FOR UNKNOWN INDICATION
  3. LACOSAMIDE. [Suspect]
     Active Substance: LACOSAMIDE
     Indication: PRODUCT USED FOR UNKNOWN INDICATION
     Dosage: UNK
  4. LAMOTRIGINE. [Suspect]
     Active Substance: LAMOTRIGINE
     Indication: PRODUCT USED FOR UNKNOWN INDICATION

REACTIONS (11)
  - Cardiac arrest [Unknown]
  - Cardiac failure [Unknown]
  - Toxicity to various agents [Fatal]
  - Atrioventricular block [Unknown]
  - Seizure [Unknown]
  - Mydriasis [Unknown]
  - Metabolic acidosis [Unknown]
  - Anuria [Unknown]
  - Multiple organ dysfunction syndrome [Unknown]
  - Cerebral hypoperfusion [Unknown]
  - Renal failure [Unknown]
